FAERS Safety Report 6266274-X (Version None)
Quarter: 2009Q3

REPORT INFORMATION
  Report Type: 
  Country: None (occurrence: None)
  Receive Date: 20090713
  Receipt Date: 20090706
  Transmission Date: 20100115
  Serious: Yes (Hospitalization)
  Sender: FDA-Public Use
  Company Number: FR-SANOFI-SYNTHELABO-A01200906554

PATIENT
  Age: 62 Year
  Sex: Male

DRUGS (7)
  1. PLAVIX [Suspect]
     Indication: ARTERITIS
     Dosage: UNK
     Route: 048
  2. PLAVIX [Suspect]
     Indication: TRANSIENT ISCHAEMIC ATTACK
     Dosage: UNK
     Route: 048
  3. PLAVIX [Suspect]
     Indication: ACUTE CORONARY SYNDROME
     Dosage: UNK
     Route: 048
  4. KARDEGIC [Concomitant]
     Indication: DRUG USE FOR UNKNOWN INDICATION
     Dosage: UNK
     Route: 065
  5. RENAGEL [Concomitant]
     Indication: RENAL FAILURE
     Dosage: UNK
     Route: 065
  6. ANTICHOLESTEROL [Concomitant]
     Indication: HYPERCHOLESTEROLAEMIA
     Dosage: UNK
     Route: 065
  7. ANTIHYPERTENSIVES [Concomitant]
     Indication: HYPERTENSION
     Dosage: UNK
     Route: 065

REACTIONS (1)
  - AORTIC ANEURYSM RUPTURE [None]
